FAERS Safety Report 25623929 (Version 1)
Quarter: 2025Q3

REPORT INFORMATION
  Report Type: Report from Study
  Country: CN (occurrence: CN)
  Receive Date: 20250730
  Receipt Date: 20250730
  Transmission Date: 20251020
  Serious: Yes (Other)
  Sender: ROCHE
  Company Number: CN-ROCHE-10000346241

PATIENT

DRUGS (20)
  1. ATEZOLIZUMAB [Suspect]
     Active Substance: ATEZOLIZUMAB
     Indication: Cholangiocarcinoma
     Dosage: (60  MG/DAY OF [BSA]{1.25M2, 80  MG/DAY OF [BSA] BETWEEN 1.25 AND 1.50M2, AND 100  MG/DAY OF [BSA]}/
     Route: 042
  2. CAPECITABINE [Suspect]
     Active Substance: CAPECITABINE
     Indication: Cholangiocarcinoma
     Dosage: ON DAYS 1-14 FOR EVERY 3 WEEKS
     Route: 048
  3. CAMRELIZUMAB [Suspect]
     Active Substance: CAMRELIZUMAB
     Indication: Cholangiocarcinoma
     Route: 042
  4. TORIPALIMAB [Suspect]
     Active Substance: TORIPALIMAB
     Indication: Cholangiocarcinoma
     Route: 042
  5. TISLELIZUMAB [Suspect]
     Active Substance: TISLELIZUMAB
     Indication: Cholangiocarcinoma
     Route: 042
  6. SINTILIMAB [Suspect]
     Active Substance: SINTILIMAB
     Indication: Cholangiocarcinoma
     Route: 042
  7. PEMBROLIZUMAB [Suspect]
     Active Substance: PEMBROLIZUMAB
     Indication: Cholangiocarcinoma
     Route: 042
  8. NIVOLUMAB [Suspect]
     Active Substance: NIVOLUMAB
     Indication: Cholangiocarcinoma
     Route: 042
  9. DURVALUMAB [Suspect]
     Active Substance: DURVALUMAB
     Indication: Cholangiocarcinoma
     Route: 042
  10. ENVAFOLIMAB [Suspect]
     Active Substance: ENVAFOLIMAB
     Indication: Cholangiocarcinoma
     Route: 042
  11. SERPLULIMAB [Suspect]
     Active Substance: SERPLULIMAB
     Indication: Cholangiocarcinoma
     Route: 042
  12. ADEBRELIMAB [Suspect]
     Active Substance: ADEBRELIMAB
     Indication: Cholangiocarcinoma
     Route: 042
  13. CISPLATIN [Suspect]
     Active Substance: CISPLATIN
     Indication: Cholangiocarcinoma
     Route: 065
  14. GEMCITABINE [Suspect]
     Active Substance: GEMCITABINE
     Indication: Cholangiocarcinoma
     Route: 065
  15. OXALIPLATIN [Suspect]
     Active Substance: OXALIPLATIN
     Indication: Cholangiocarcinoma
     Route: 065
  16. PACLITAXEL [Suspect]
     Active Substance: PACLITAXEL
     Indication: Cholangiocarcinoma
     Route: 065
  17. LENVATINIB [Suspect]
     Active Substance: LENVATINIB
     Indication: Cholangiocarcinoma
     Dosage: 8 MG OR 12  MG
     Route: 048
  18. CATEQUENTINIB [Suspect]
     Active Substance: CATEQUENTINIB
     Indication: Cholangiocarcinoma
     Dosage: ON DAYS 1-14 FOR EVERY 3 WEEKS.
     Route: 048
  19. RIVOCERANIB [Suspect]
     Active Substance: RIVOCERANIB
     Indication: Cholangiocarcinoma
     Route: 048
  20. GIMERACIL\OTERACIL\TEGAFUR [Suspect]
     Active Substance: GIMERACIL\OTERACIL POTASSIUM\TEGAFUR
     Indication: Cholangiocarcinoma
     Route: 048

REACTIONS (32)
  - Peripheral sensory neuropathy [Unknown]
  - Vomiting [Unknown]
  - Hypertension [Unknown]
  - Leukopenia [Unknown]
  - Neutropenia [Unknown]
  - Thrombocytopenia [Unknown]
  - Alanine aminotransferase increased [Unknown]
  - Aspartate aminotransferase increased [Unknown]
  - Hypoalbuminaemia [Unknown]
  - Blood creatinine increased [Unknown]
  - Rash [Unknown]
  - Pyrexia [Unknown]
  - Abdominal pain [Unknown]
  - Diarrhoea [Unknown]
  - Decreased appetite [Unknown]
  - Fatigue [Unknown]
  - Weight decreased [Unknown]
  - Anaemia [Unknown]
  - Hyponatraemia [Unknown]
  - Hypokalaemia [Unknown]
  - Hyperbilirubinaemia [Unknown]
  - Hypersensitivity [Unknown]
  - Dyspnoea [Unknown]
  - Mucosal inflammation [Unknown]
  - Hyperthyroidism [Unknown]
  - Pneumonitis [Unknown]
  - Arthritis [Unknown]
  - Nephritis [Unknown]
  - Pruritus [Unknown]
  - Myocarditis [Unknown]
  - Enteritis [Unknown]
  - Uveitis [Unknown]
